FAERS Safety Report 16539431 (Version 1)
Quarter: 2019Q3

REPORT INFORMATION
  Report Type: Spontaneous
  Country: NL (occurrence: FR)
  Receive Date: 20190708
  Receipt Date: 20190708
  Transmission Date: 20191004
  Serious: Yes (Death, Hospitalization, Other)
  Sender: FDA-Public Use
  Company Number: FR-FRESENIUS KABI-FK201907049

PATIENT
  Age: 39 Year
  Sex: Female

DRUGS (15)
  1. PROPOFOL (MANUFACTURER UNKNOWN) [Suspect]
     Active Substance: PROPOFOL
     Indication: STATUS EPILEPTICUS
     Route: 042
     Dates: start: 20160117
  2. CLONAZEPAM. [Suspect]
     Active Substance: CLONAZEPAM
     Indication: STATUS EPILEPTICUS
     Dosage: 4 MG/ DAY
     Route: 048
     Dates: start: 20160119
  3. LACOSAMIDE. [Suspect]
     Active Substance: LACOSAMIDE
     Indication: STATUS EPILEPTICUS
     Route: 048
     Dates: start: 20160118, end: 20160130
  4. PHENOBARBITAL. [Suspect]
     Active Substance: PHENOBARBITAL
     Route: 048
     Dates: start: 20160130, end: 2016
  5. PHENOBARBITAL. [Suspect]
     Active Substance: PHENOBARBITAL
     Dosage: LOADING DOSE FOLLOWED BY MAINTANENCE DOSE
     Route: 048
     Dates: start: 20160205
  6. PHENYTOIN. [Suspect]
     Active Substance: PHENYTOIN
     Indication: STATUS EPILEPTICUS
     Dosage: 700 MG,
     Route: 042
     Dates: start: 20160117, end: 20160207
  7. MAGNESIUM SULFATE. [Concomitant]
     Active Substance: MAGNESIUM SULFATE
     Indication: PRODUCT USED FOR UNKNOWN INDICATION
     Route: 065
  8. OXCARBAZEPINE. [Suspect]
     Active Substance: OXCARBAZEPINE
     Indication: STATUS EPILEPTICUS
     Route: 048
     Dates: start: 20160118, end: 20160204
  9. PHENOBARBITAL. [Suspect]
     Active Substance: PHENOBARBITAL
     Indication: STATUS EPILEPTICUS
     Route: 048
     Dates: start: 20160117, end: 20160119
  10. AMOXICILLIN SODIUM/CLAVULANATE POTASSIUM [Concomitant]
     Indication: PRODUCT USED FOR UNKNOWN INDICATION
     Dosage: UNK, FOR 8 DAYS
     Route: 065
     Dates: start: 201602
  11. CLONAZEPAM. [Suspect]
     Active Substance: CLONAZEPAM
     Dosage: 2 MG, DAILY
     Route: 048
     Dates: start: 20160118, end: 20160118
  12. LEVETIRACETAM. [Suspect]
     Active Substance: LEVETIRACETAM
     Indication: STATUS EPILEPTICUS
     Dosage: 1 G, 3X/DAY (TID)
     Route: 042
     Dates: start: 20160117, end: 20160119
  13. LEVETIRACETAM. [Suspect]
     Active Substance: LEVETIRACETAM
     Route: 065
     Dates: start: 20160125
  14. LACOSAMIDE. [Suspect]
     Active Substance: LACOSAMIDE
     Route: 065
  15. NICARDIPINE HYDROCHLORIDE. [Concomitant]
     Active Substance: NICARDIPINE HYDROCHLORIDE
     Indication: BLOOD PRESSURE ABNORMAL
     Route: 065
     Dates: start: 2016

REACTIONS (13)
  - Premature delivery [Fatal]
  - Transaminases increased [Fatal]
  - Multiple organ dysfunction syndrome [Fatal]
  - Agranulocytosis [Fatal]
  - Off label use [Fatal]
  - Blood alkaline phosphatase increased [Fatal]
  - Lung disorder [Fatal]
  - Pre-eclampsia [Fatal]
  - Exposure during pregnancy [Fatal]
  - Septic shock [Fatal]
  - Gamma-glutamyltransferase increased [Fatal]
  - Liver injury [Fatal]
  - Pyrexia [Fatal]

NARRATIVE: CASE EVENT DATE: 20160117
